FAERS Safety Report 6034430-1 (Version None)
Quarter: 2009Q1

REPORT INFORMATION
  Report Type: 
  Country: None (occurrence: None)
  Receive Date: 20090108
  Receipt Date: 20081223
  Transmission Date: 20090719
  Serious: Yes (Death)
  Sender: FDA-Public Use
  Company Number: 8040744

PATIENT
  Age: 31 Year
  Sex: Female

DRUGS (10)
  1. HYDROCODONE BITARTRATE + ACETAMINOPHEN [Suspect]
     Dates: end: 20070101
  2. VENLAFAXINE HCL [Suspect]
     Dates: end: 20070101
  3. VALOPROIC ACID [Suspect]
     Dates: end: 20070101
  4. CODEINE/PROMETHAZINE [Suspect]
     Dates: end: 20070101
  5. DULOXETINE [Suspect]
     Dates: end: 20070101
  6. TRAZODONE HCL [Suspect]
     Dates: end: 20070101
  7. PSEUDOEPHEDRINE HCL [Suspect]
     Dates: end: 20070101
  8. DIPHENHYDRAMINE HCL [Suspect]
     Dates: end: 20070101
  9. ACETAMINOPHEN [Suspect]
     Dates: end: 20070101
  10. ACETAMINOPHEN/DIPHENHYDRAMINE [Suspect]
     Dates: end: 20070101

REACTIONS (1)
  - ANALGESIC DRUG LEVEL ABOVE THERAPEUTIC [None]
